FAERS Safety Report 12111012 (Version 1)
Quarter: 2016Q1

REPORT INFORMATION
  Report Type: Spontaneous
  Country: US (occurrence: US)
  Receive Date: 20160224
  Receipt Date: 20160224
  Transmission Date: 20160526
  Serious: No
  Sender: FDA-Public Use
  Company Number: US-JAZZ-2015-US-003879

PATIENT
  Age: 71 Year
  Sex: Male

DRUGS (10)
  1. PRIALT [Suspect]
     Active Substance: ZICONOTIDE ACETATE
     Indication: PAIN
     Dosage: 0.05 ?G, QH
     Route: 037
     Dates: start: 20150226, end: 20150306
  2. PRIALT [Suspect]
     Active Substance: ZICONOTIDE ACETATE
     Indication: POST LAMINECTOMY SYNDROME
     Dosage: UNK ?G, QH
     Route: 037
     Dates: start: 20150306, end: 20150313
  3. CYMBALTA [Concomitant]
     Active Substance: DULOXETINE HYDROCHLORIDE
  4. METHOTREXATE LPF [Concomitant]
  5. NEURONTIN [Concomitant]
     Active Substance: GABAPENTIN
  6. MOBIC [Concomitant]
     Active Substance: MELOXICAM
  7. LISINOPRIL. [Concomitant]
     Active Substance: LISINOPRIL
  8. COLACE [Concomitant]
     Active Substance: DOCUSATE SODIUM
  9. LASIX [Concomitant]
     Active Substance: FUROSEMIDE
  10. HYDROCHLOROTHIAZIDE. [Concomitant]
     Active Substance: HYDROCHLOROTHIAZIDE

REACTIONS (8)
  - Anorectal discomfort [Recovering/Resolving]
  - Depression [Recovering/Resolving]
  - Tongue disorder [Recovering/Resolving]
  - Hallucination [Recovering/Resolving]
  - Nausea [Recovering/Resolving]
  - Chills [Recovering/Resolving]
  - Device issue [Recovered/Resolved]
  - Burning sensation [Recovering/Resolving]

NARRATIVE: CASE EVENT DATE: 20150218
